FAERS Safety Report 5836777-8 (Version None)
Quarter: 2008Q3

REPORT INFORMATION
  Report Type: 
  Country: None (occurrence: None)
  Receive Date: 20080806
  Receipt Date: 20080806
  Transmission Date: 20090109
  Serious: Yes (Death)
  Sender: FDA-Public Use
  Company Number: None

PATIENT
  Sex: Male
  Weight: 72 kg

DRUGS (2)
  1. PROTAMINE SULFATE [Suspect]
     Indication: HEPARIN NEUTRALISATION THERAPY
     Dosage: 40 MG ONCE IV
     Route: 042
     Dates: start: 20080318, end: 20080318
  2. HEPARIN [Suspect]

REACTIONS (1)
  - CARDIAC ARREST [None]
